FAERS Safety Report 7824428-2 (Version None)
Quarter: 2011Q4

REPORT INFORMATION
  Report Type: 
  Country: None (occurrence: None)
  Receive Date: 20111014
  Receipt Date: 20111005
  Transmission Date: 20120403
  Serious: Yes (Hospitalization)
  Sender: FDA-Public Use
  Company Number: 2011-01145

PATIENT
  Age: 75 Year
  Sex: Male

DRUGS (4)
  1. AMLODIPINE [Suspect]
     Indication: PERIPHERAL COLDNESS
     Dosage: 5 MG (5 MG, 1 IN 1 D), ORAL
     Route: 048
     Dates: start: 20110601, end: 20110923
  2. SIMVASTATIN [Suspect]
     Indication: HYPERCHOLESTEROLAEMIA
     Dosage: 40 MG (40 MG, 1 IN 1 D), ORAL
     Route: 048
     Dates: end: 20110923
  3. ASPIRIN [Concomitant]
  4. LOSARTAN POTASSIUM [Concomitant]

REACTIONS (6)
  - GAIT DISTURBANCE [None]
  - MUSCULAR WEAKNESS [None]
  - URINE ODOUR ABNORMAL [None]
  - PAIN IN EXTREMITY [None]
  - MYOPATHY [None]
  - URINE COLOUR ABNORMAL [None]
